FAERS Safety Report 12606562 (Version 1)
Quarter: 2016Q3

REPORT INFORMATION
  Report Type: Spontaneous
  Country: US (occurrence: US)
  Receive Date: 20160729
  Receipt Date: 20160729
  Transmission Date: 20161109
  Serious: Yes (Other)
  Sender: FDA-Public Use
  Company Number: ALCN2016US005227

PATIENT
  Age: 50 Year
  Sex: Male

DRUGS (2)
  1. PREDNISOLONE ACETATE. [Suspect]
     Active Substance: PREDNISOLONE ACETATE
     Indication: IRITIS
     Route: 047
  2. CYCLOPENTOLATE HCL [Suspect]
     Active Substance: CYCLOPENTOLATE HYDROCHLORIDE
     Indication: IRITIS
     Route: 047

REACTIONS (9)
  - Pupillary reflex impaired [Recovered/Resolved]
  - Condition aggravated [Not Recovered/Not Resolved]
  - Hypoacusis [Not Recovered/Not Resolved]
  - Vitreous floaters [Not Recovered/Not Resolved]
  - Balance disorder [Unknown]
  - Deafness neurosensory [Not Recovered/Not Resolved]
  - Secondary syphilis [Recovering/Resolving]
  - Visual acuity reduced [Recovering/Resolving]
  - Pupils unequal [Not Recovered/Not Resolved]
